FAERS Safety Report 6355399-6 (Version None)
Quarter: 2009Q3

REPORT INFORMATION
  Report Type: 
  Country: None (occurrence: None)
  Receive Date: 20090914
  Receipt Date: 20090907
  Transmission Date: 20100115
  Serious: Yes (Death, Other)
  Sender: FDA-Public Use
  Company Number: FR-AMGEN-QUU363228

PATIENT
  Age: 76 Year
  Sex: Female
  Weight: 70 kg

DRUGS (6)
  1. NEULASTA [Suspect]
     Indication: CHEMOTHERAPY
     Route: 065
     Dates: start: 20090814, end: 20090814
  2. RITUXIMAB [Concomitant]
     Dates: start: 20090813
  3. CYTOXAN [Concomitant]
     Dates: start: 20090813
  4. ADRIAMYCIN PFS [Concomitant]
     Dates: start: 20090813
  5. ONCOVIN [Concomitant]
     Dates: start: 20090813
  6. PREDNISONE [Concomitant]
     Dates: start: 20090813

REACTIONS (4)
  - AGRANULOCYTOSIS [None]
  - DEATH [None]
  - PSEUDOMONAS INFECTION [None]
  - SEPTIC SHOCK [None]
